FAERS Safety Report 20344690 (Version 2)
Quarter: 2022Q1

REPORT INFORMATION
  Report Type: Report from Study
  Country: US (occurrence: US)
  Receive Date: 20220118
  Receipt Date: 20220122
  Transmission Date: 20220423
  Serious: Yes (Death, Hospitalization)
  Sender: FDA-Public Use
  Company Number: US-NOVARTISPH-NVSC2022US008503

PATIENT
  Age: 5 Year
  Sex: Male
  Weight: 15.42 kg

DRUGS (1)
  1. TREPROSTINIL [Suspect]
     Active Substance: TREPROSTINIL
     Indication: Pulmonary arterial hypertension
     Dosage: 76 NG/KG/MIN, CONT
     Route: 042
     Dates: start: 20201112

REACTIONS (3)
  - Hypertensive crisis [Fatal]
  - Cardiac arrest [Fatal]
  - Vascular device infection [Fatal]

NARRATIVE: CASE EVENT DATE: 20220113
